FAERS Safety Report 18916961 (Version 3)
Quarter: 2021Q2

REPORT INFORMATION
  Report Type: Spontaneous
  Country: US (occurrence: US)
  Receive Date: 20210219
  Receipt Date: 20210421
  Transmission Date: 20210717
  Serious: Yes (Life-Threatening, Other)
  Sender: FDA-Public Use
  Company Number: US-PFIZER INC-2021142922

PATIENT
  Age: 90 Month
  Sex: Male

DRUGS (2)
  1. GELFOAM [Suspect]
     Active Substance: GELATIN\THROMBIN HUMAN
     Indication: HAEMOSTASIS
     Dosage: UNK
  2. THROMBIN [Suspect]
     Active Substance: THROMBIN
     Indication: HAEMOSTASIS

REACTIONS (1)
  - Anaphylactic reaction [Recovered/Resolved]
